FAERS Safety Report 6286385-2 (Version None)
Quarter: 2009Q3

REPORT INFORMATION
  Report Type: 
  Country: None (occurrence: None)
  Receive Date: 20090727
  Receipt Date: 20090727
  Transmission Date: 20100115
  Serious: Yes (Life-Threatening)
  Sender: FDA-Public Use
  Company Number: None

PATIENT
  Sex: Female

DRUGS (1)
  1. ENBREL [Suspect]
     Indication: ARTHRITIS
     Dosage: ONCE A WEEK IM
     Route: 030
     Dates: end: 20080201

REACTIONS (2)
  - LIVER DISORDER [None]
  - NON-HODGKIN'S LYMPHOMA [None]
